FAERS Safety Report 9374041 (Version 1)
Quarter: 2013Q2

REPORT INFORMATION
  Report Type: Spontaneous
  Country: US (occurrence: None)
  Receive Date: 20130627
  Receipt Date: 20130627
  Transmission Date: 20140414
  Serious: No
  Sender: FDA-Public Use
  Company Number: None

PATIENT
  Age: 45 Year
  Sex: Female

DRUGS (1)
  1. HUMIRA [Suspect]
     Indication: ENTERITIS
     Dosage: 40 MG QOW SUBQ
     Route: 058
     Dates: start: 20130328

REACTIONS (4)
  - Local swelling [None]
  - Erythema [None]
  - Pain [None]
  - Localised infection [None]
